FAERS Safety Report 4721667-4 (Version None)
Quarter: 2005Q3

REPORT INFORMATION
  Report Type: 
  Country: None (occurrence: None)
  Receive Date: 20050721
  Receipt Date: 20050211
  Transmission Date: 20060218
  Serious: No
  Sender: FDA-Public Use
  Company Number: US-BRISTOL-MYERS SQUIBB COMPANY-12860722

PATIENT
  Age: 76 Year
  Sex: Female
  Weight: 58 kg

DRUGS (3)
  1. COUMADIN [Suspect]
     Indication: PROPHYLAXIS
     Dosage: 2-4 MG DAILY
     Dates: start: 20040101
  2. ASCORBIC ACID [Concomitant]
  3. THERAGRAN-M ADVANCED [Concomitant]

REACTIONS (1)
  - DIZZINESS [None]
